FAERS Safety Report 9774949 (Version 1)
Quarter: 2013Q4

REPORT INFORMATION
  Report Type: Spontaneous
  Country: JP (occurrence: JP)
  Receive Date: 20131220
  Receipt Date: 20131220
  Transmission Date: 20140711
  Serious: Yes (Other)
  Sender: FDA-Public Use
  Company Number: JP-ASTRAZENECA-2013SE90960

PATIENT
  Age: 79 Year
  Sex: Male

DRUGS (2)
  1. ANAPEINE [Suspect]
     Indication: POSTOPERATIVE ANALGESIA
     Dosage: 2 MG/ML
     Route: 008
  2. FENTANYL [Suspect]
     Indication: POSTOPERATIVE ANALGESIA
     Route: 008

REACTIONS (1)
  - Spinal cord infarction [Recovered/Resolved]
